FAERS Safety Report 8428076-5 (Version None)
Quarter: 2012Q2

REPORT INFORMATION
  Report Type: 
  Country: None (occurrence: None)
  Receive Date: 20120611
  Receipt Date: 20120606
  Transmission Date: 20120825
  Serious: Yes (Death, Other)
  Sender: FDA-Public Use
  Company Number: US-CELGENEUS-163-21880-12030978

PATIENT
  Sex: Female

DRUGS (16)
  1. SPIRIVA [Concomitant]
     Dosage: 18 MICROGRAM
     Route: 065
  2. PREDNISONE TAB [Concomitant]
     Dosage: 5 MILLIGRAM
     Route: 065
  3. MULTI-VITAMINS [Concomitant]
     Route: 065
  4. ADVAIR DISKUS 100/50 [Concomitant]
     Dosage: 250/50
     Route: 055
  5. MUCINEX [Concomitant]
     Dosage: 1 TABLET
     Route: 065
  6. LISINOPRIL [Concomitant]
     Dosage: 10
     Route: 065
  7. CALTRATE WITH D [Concomitant]
     Dosage: 2 TABLET
     Route: 065
  8. IRON [Concomitant]
     Dosage: 325
     Route: 065
  9. REVLIMID [Suspect]
     Dosage: 10 MILLIGRAM
     Route: 048
     Dates: start: 20100801, end: 20111101
  10. ASPIRIN [Concomitant]
     Dosage: 81 MILLIGRAM
     Route: 048
  11. ASCORBIC ACID [Concomitant]
     Route: 065
  12. EXTRA STRENGTH TYLENOL [Concomitant]
     Route: 065
  13. LASIX [Concomitant]
     Dosage: 20 MILLIGRAM
     Route: 048
     Dates: end: 20110901
  14. PRILOSEC [Concomitant]
     Dosage: 20 MILLIGRAM
     Route: 048
  15. TRAZODONE HCL [Concomitant]
     Dosage: 100 MILLIGRAM
     Route: 065
  16. UNISOM [Concomitant]
     Dosage: 1 TABLET
     Route: 065

REACTIONS (5)
  - DEATH [None]
  - SKIN LESION [None]
  - RESPIRATORY FAILURE [None]
  - SPINAL FRACTURE [None]
  - FALL [None]
